FAERS Safety Report 12411383 (Version 1)
Quarter: 2016Q2

REPORT INFORMATION
  Report Type: Report from Study
  Country: CO (occurrence: CO)
  Receive Date: 20160527
  Receipt Date: 20160527
  Transmission Date: 20160815
  Serious: Yes (Death)
  Sender: FDA-Public Use
  Company Number: PHHY2016CO071257

PATIENT
  Age: 10 Year

DRUGS (1)
  1. TOBI PODHALER [Suspect]
     Active Substance: TOBRAMYCIN
     Indication: CYSTIC FIBROSIS
     Dosage: 112 MG/KG, Q12H
     Route: 055
     Dates: start: 20130615, end: 20160520

REACTIONS (1)
  - Pneumonia [Fatal]
